FAERS Safety Report 6218104-X (Version None)
Quarter: 2009Q2

REPORT INFORMATION
  Report Type: 
  Country: None (occurrence: None)
  Receive Date: 20090608
  Receipt Date: 20090528
  Transmission Date: 20091009
  Serious: Yes (Other)
  Sender: FDA-Public Use
  Company Number: PHHY2009IN20955

PATIENT
  Age: 60 Year
  Sex: Female

DRUGS (1)
  1. ACLASTA [Suspect]
     Indication: OSTEOPENIA
     Dosage: 5 MG/100 ML

REACTIONS (2)
  - HAEMORRHAGE SUBCUTANEOUS [None]
  - PRURITUS GENERALISED [None]
